FAERS Safety Report 4600341-9 (Version None)
Quarter: 2005Q1

REPORT INFORMATION
  Report Type: 
  Country: None (occurrence: None)
  Receive Date: 20050127
  Receipt Date: 20041104
  Transmission Date: 20050727
  Serious: No
  Sender: FDA-Public Use
  Company Number: USA041183207

PATIENT
  Age: 57 Year
  Sex: Female

DRUGS (6)
  1. STRATTERA [Suspect]
     Indication: ATTENTION DEFICIT/HYPERACTIVITY DISORDER
     Dosage: 120 MG DAY
     Dates: start: 20040901
  2. CLONAZEPAM [Concomitant]
  3. IMIPRAMINE [Concomitant]
  4. THYROID TAB [Concomitant]
  5. PREMARIN [Concomitant]
  6. SKELAXIN [Concomitant]

REACTIONS (4)
  - IMPAIRED DRIVING ABILITY [None]
  - PANIC ATTACK [None]
  - PRESCRIBED OVERDOSE [None]
  - TREMOR [None]
